FAERS Safety Report 4437829-X (Version None)
Quarter: 2004Q3

REPORT INFORMATION
  Report Type: 
  Country: None (occurrence: None)
  Receive Date: 20040831
  Receipt Date: 20040819
  Transmission Date: 20050211
  Serious: Yes (Other)
  Sender: FDA-Public Use
  Company Number: BE-JNJFOC-20040605431

PATIENT
  Age: 92 Year
  Sex: Male

DRUGS (2)
  1. PROPULSID [Suspect]
     Route: 049
  2. PROPULSID [Suspect]
     Route: 049

REACTIONS (1)
  - NO ADVERSE DRUG EFFECT [None]
